FAERS Safety Report 15134944 (Version 1)
Quarter: 2018Q3

REPORT INFORMATION
  Report Type: Spontaneous
  Country: US (occurrence: US)
  Receive Date: 20180616
  Receipt Date: 20180616
  Transmission Date: 20181010
  Serious: Yes (Hospitalization)
  Sender: FDA-Public Use
  Company Number: None

PATIENT
  Age: 16 Year
  Sex: Female
  Weight: 49.5 kg

DRUGS (4)
  1. LEXAPRO [Concomitant]
     Active Substance: ESCITALOPRAM OXALATE
  2. INTUNIV [Concomitant]
     Active Substance: GUANFACINE HYDROCHLORIDE
  3. ATOMOXETINE 80 MG CAP GLENMARK [Suspect]
     Active Substance: ATOMOXETINE
     Indication: ATTENTION DEFICIT/HYPERACTIVITY DISORDER
     Dosage: ?          QUANTITY:30 DF DOSAGE FORM;?
     Route: 048
     Dates: start: 20180401, end: 20180528
  4. ATOMOXETINE 80 MG CAP GLENMARK [Suspect]
     Active Substance: ATOMOXETINE
     Indication: OPPOSITIONAL DEFIANT DISORDER
     Dosage: ?          QUANTITY:30 DF DOSAGE FORM;?
     Route: 048
     Dates: start: 20180401, end: 20180528

REACTIONS (5)
  - Agitation [None]
  - Aggression [None]
  - Mood altered [None]
  - Psychomotor hyperactivity [None]
  - Fatigue [None]

NARRATIVE: CASE EVENT DATE: 20180528
